FAERS Safety Report 6520999-7 (Version None)
Quarter: 2009Q4

REPORT INFORMATION
  Report Type: 
  Country: None (occurrence: None)
  Receive Date: 20091229
  Receipt Date: 20091221
  Transmission Date: 20100525
  Serious: Yes (Hospitalization)
  Sender: FDA-Public Use
  Company Number: GB-ABBOTT-09P-167-0616122-00

PATIENT
  Sex: Male

DRUGS (2)
  1. HUMIRA [Suspect]
     Indication: CROHN'S DISEASE
     Dosage: LOADING DOSE
     Route: 058
     Dates: start: 20091204
  2. HUMIRA [Suspect]
     Route: 058
     Dates: start: 20091218

REACTIONS (3)
  - CONVULSION [None]
  - FOAMING AT MOUTH [None]
  - TREMOR [None]
